FAERS Safety Report 4355763-0 (Version None)
Quarter: 2004Q2

REPORT INFORMATION
  Report Type: 
  Country: None (occurrence: None)
  Receive Date: 20040505
  Receipt Date: 20040420
  Transmission Date: 20050107
  Serious: Yes (Death, Hospitalization)
  Sender: FDA-Public Use
  Company Number: 202580

PATIENT
  Sex: Female
  Weight: 1 kg

DRUGS (3)
  1. HERCEPTIN [Suspect]
     Indication: BREAST CANCER
     Dosage: SEE IMAGE
     Route: 064
     Dates: start: 20020709
  2. HERCEPTIN [Suspect]
     Indication: BREAST CANCER
     Dosage: SEE IMAGE
     Route: 064
     Dates: start: 20030214
  3. VINORELBINE (VINORELBINE) [Suspect]
     Indication: BREAST CANCER
     Dosage: 25 MG/M2, 1 WEEK, TRANSPLACENTAL
     Route: 064
     Dates: start: 20020709, end: 20030123

REACTIONS (15)
  - CONGENITAL ARTERIAL MALFORMATION [None]
  - CONGENITAL HEPATIC FIBROSIS [None]
  - CONGENITAL RENAL CYST [None]
  - DRUG EXPOSURE DURING PREGNANCY [None]
  - HEART DISEASE CONGENITAL [None]
  - HEPATIC CONGESTION [None]
  - HEPATOBLASTOMA [None]
  - KIDNEY MALFORMATION [None]
  - MYOCARDIAL INFARCTION [None]
  - NEONATAL CHOLESTASIS [None]
  - NEONATAL DISORDER [None]
  - NEONATAL RESPIRATORY DISTRESS SYNDROME [None]
  - PREMATURE BABY [None]
  - RENAL FAILURE ACUTE [None]
  - RIGHT VENTRICULAR FAILURE [None]
